FAERS Safety Report 18617081 (Version 1)
Quarter: 2020Q4

REPORT INFORMATION
  Report Type: Spontaneous
  Country: US (occurrence: US)
  Receive Date: 20201215
  Receipt Date: 20201215
  Transmission Date: 20210114
  Serious: No
  Sender: FDA-Public Use
  Company Number: US-CELLTRION INC.-2020US029581

PATIENT

DRUGS (2)
  1. TRUXIMA [Suspect]
     Active Substance: RITUXIMAB-ABBS
     Indication: WHITE BLOOD CELL COUNT DECREASED
     Dosage: 1000 MILLIGRAM
     Route: 042
     Dates: start: 20200908
  2. TRUXIMA [Suspect]
     Active Substance: RITUXIMAB-ABBS
     Indication: THROMBOTIC MICROANGIOPATHY
     Dosage: 1000 MG D1, 15 Q 6 MONTH X 6 CYCLES
     Route: 042
     Dates: start: 20200922

REACTIONS (2)
  - No adverse event [Unknown]
  - Off label use [Unknown]
